FAERS Safety Report 21176353 (Version 1)
Quarter: 2022Q3

REPORT INFORMATION
  Report Type: Spontaneous
  Country: US (occurrence: US)
  Receive Date: 20220805
  Receipt Date: 20220805
  Transmission Date: 20221026
  Serious: Yes (Other)
  Sender: FDA-Public Use
  Company Number: US-AMGEN-USASP2022132720

PATIENT
  Age: 76 Year
  Sex: Female

DRUGS (2)
  1. EPOETIN ALFA [Suspect]
     Active Substance: ERYTHROPOIETIN
     Indication: Sickle cell anaemia
     Dosage: 60000 UNIT, QWK
     Route: 058
  2. EPOETIN ALFA [Suspect]
     Active Substance: ERYTHROPOIETIN
     Indication: Off label use

REACTIONS (3)
  - Primary myelofibrosis [Unknown]
  - Thrombocytosis [Recovering/Resolving]
  - Off label use [Unknown]
